FAERS Safety Report 8581551-5 (Version None)
Quarter: 2012Q3

REPORT INFORMATION
  Report Type: 
  Country: None (occurrence: None)
  Receive Date: 20120809
  Receipt Date: 20120806
  Transmission Date: 20120928
  Serious: Yes (Death, Hospitalization)
  Sender: FDA-Public Use
  Company Number: PE-ASTRAZENECA-2012SE52666

PATIENT
  Age: 86 Year
  Sex: Female

DRUGS (6)
  1. ENOXAPARIN [Suspect]
     Indication: ACUTE CORONARY SYNDROME
     Route: 065
  2. VALSARTAN [Concomitant]
     Indication: HYPERTENSION
  3. BISOPROLOL FUMARATE [Concomitant]
     Indication: ACUTE CORONARY SYNDROME
  4. BRILINTA [Suspect]
     Indication: ACUTE CORONARY SYNDROME
     Route: 048
  5. HYDROCHLOROTHIAZIDE [Concomitant]
     Indication: HYPERTENSION
  6. ASPIRIN [Suspect]
     Indication: ACUTE CORONARY SYNDROME
     Route: 048

REACTIONS (3)
  - RESPIRATORY FAILURE [None]
  - HAEMORRHAGIC STROKE [None]
  - PNEUMONIA [None]
